FAERS Safety Report 6697738-2 (Version None)
Quarter: 2010Q2

REPORT INFORMATION
  Report Type: 
  Country: None (occurrence: None)
  Receive Date: 20100423
  Receipt Date: 20100409
  Transmission Date: 20101027
  Serious: Yes (Other)
  Sender: FDA-Public Use
  Company Number: 2010SP021002

PATIENT
  Sex: 0

DRUGS (1)
  1. TEMODAR [Suspect]
     Indication: DRUG USE FOR UNKNOWN INDICATION

REACTIONS (5)
  - BODY TEMPERATURE INCREASED [None]
  - FATIGUE [None]
  - HEADACHE [None]
  - NAUSEA [None]
  - SYNCOPE [None]
